FAERS Safety Report 6149643-8 (Version None)
Quarter: 2009Q2

REPORT INFORMATION
  Report Type: 
  Country: None (occurrence: None)
  Receive Date: 20090409
  Receipt Date: 20090330
  Transmission Date: 20091009
  Serious: Yes (Other)
  Sender: FDA-Public Use
  Company Number: CA-ALLERGAN-0802221US

PATIENT
  Sex: Male

DRUGS (4)
  1. LUMIGAN [Suspect]
     Indication: DRUG USE FOR UNKNOWN INDICATION
     Dosage: UNK, QHS
  2. COMBIGAN [Suspect]
     Indication: DRUG USE FOR UNKNOWN INDICATION
     Dosage: UNK, BID
  3. LASIX [Concomitant]
     Dosage: 40 MG, QD
  4. COSOPT [Concomitant]
     Dosage: UNK, BID

REACTIONS (2)
  - ASTHENIA [None]
  - MUSCULAR WEAKNESS [None]
